FAERS Safety Report 4959014-5 (Version None)
Quarter: 2006Q1

REPORT INFORMATION
  Report Type: 
  Country: None (occurrence: None)
  Receive Date: 20060324
  Receipt Date: 20060320
  Transmission Date: 20060701
  Serious: No
  Sender: FDA-Public Use
  Company Number: TPA2006A00273

PATIENT
  Age: 51 Year
  Sex: Male
  Weight: 70.3075 kg

DRUGS (9)
  1. ROZEREM [Suspect]
     Indication: INSOMNIA
     Dosage: 8 MG, QHS, PER ORAL; SEE IMAGE
     Route: 048
     Dates: start: 20060204, end: 20060213
  2. ROZEREM [Suspect]
     Indication: INSOMNIA
     Dosage: 8 MG, QHS, PER ORAL; SEE IMAGE
     Route: 048
     Dates: start: 20060214
  3. MELATONIN (MELATONIN) [Concomitant]
  4. MULTIVITAMIN [Concomitant]
  5. GLUCOSAMINE/CHONDROITIN (GLUCOSAMINE W/CHONDROITIN) [Concomitant]
  6. VITAMIN E [Concomitant]
  7. ASCORBIC ACID [Concomitant]
  8. OMEGA 3 (FISH OIL) [Concomitant]
  9. GABA/NIACIN [Concomitant]

REACTIONS (1)
  - DRUG INEFFECTIVE [None]
